FAERS Safety Report 16132965 (Version 1)
Quarter: 2019Q1

REPORT INFORMATION
  Report Type: Spontaneous
  Country: US (occurrence: US)
  Receive Date: 20190329
  Receipt Date: 20190329
  Transmission Date: 20190418
  Serious: No
  Sender: FDA-Public Use
  Company Number: US-PFIZER INC-2019130548

PATIENT
  Age: 70 Year
  Sex: Male

DRUGS (3)
  1. GABAPENTIN. [Suspect]
     Active Substance: GABAPENTIN
     Dosage: UNK
  2. DULOXETINE. [Suspect]
     Active Substance: DULOXETINE
     Dosage: UNK
  3. IODINE. [Suspect]
     Active Substance: IODINE
     Dosage: UNK

REACTIONS (1)
  - Drug hypersensitivity [Unknown]
